FAERS Safety Report 16724868 (Version 1)
Quarter: 2019Q3

REPORT INFORMATION
  Report Type: Spontaneous
  Country: GB (occurrence: GB)
  Receive Date: 20190821
  Receipt Date: 20190821
  Transmission Date: 20191005
  Serious: Yes (Life-Threatening, Hospitalization, Disabling, Other)
  Sender: FDA-Public Use
  Company Number: GB-GILEAD-2019-0424462

PATIENT
  Age: 47 Year
  Sex: Male

DRUGS (6)
  1. FLUOXETINE [Concomitant]
     Active Substance: FLUOXETINE HYDROCHLORIDE
     Indication: DEPRESSION
  2. COCAINE [Concomitant]
     Active Substance: COCAINE
     Indication: SUBSTANCE USE
  3. TAPENTADOL [Concomitant]
     Active Substance: TAPENTADOL
     Indication: PAIN
  4. HARVONI [Suspect]
     Active Substance: LEDIPASVIR\SOFOSBUVIR
     Indication: CHRONIC HEPATITIS C
     Dosage: 1 DOSAGE FORM, QD
     Route: 048
     Dates: start: 20190214, end: 20190221
  5. ALCOHOL. [Concomitant]
     Active Substance: ALCOHOL
  6. DIAMORPHINE [Concomitant]
     Active Substance: DIAMORPHINE
     Indication: SUBSTANCE USE

REACTIONS (1)
  - Suicide attempt [Recovered/Resolved]

NARRATIVE: CASE EVENT DATE: 20190221
